FAERS Safety Report 7680509-8 (Version None)
Quarter: 2011Q3

REPORT INFORMATION
  Report Type: 
  Country: None (occurrence: None)
  Receive Date: 20110812
  Receipt Date: 20110812
  Transmission Date: 20111222
  Serious: Yes (Hospitalization, Other)
  Sender: FDA-Public Use
  Company Number: BE-ABBOTT-11P-013-0845576-00

PATIENT
  Sex: Male

DRUGS (6)
  1. FOLIC ACID [Concomitant]
     Indication: RHEUMATOID ARTHRITIS
     Dosage: 2 MILLIGRAMS DAILY
     Dates: start: 20050101
  2. HUMIRA [Suspect]
     Indication: RHEUMATOID ARTHRITIS
     Dates: start: 20060712, end: 20100107
  3. METHOTREXATE [Concomitant]
     Indication: RHEUMATOID ARTHRITIS
     Dosage: 6 TABLETS/WEEK, SO 15MG/WEEK
     Dates: start: 20050101
  4. MEDROL [Concomitant]
     Indication: RHEUMATOID ARTHRITIS
     Dosage: 8 MILLIGRAM DAILY
     Dates: start: 20050101
  5. HUMIRA [Suspect]
     Dates: start: 20100311
  6. ACETAMINOPHEN [Concomitant]
     Indication: RHEUMATOID ARTHRITIS
     Dosage: 1GX3/DAY IF NECESSARY

REACTIONS (1)
  - INGUINAL HERNIA [None]
